FAERS Safety Report 7141890-1 (Version None)
Quarter: 2010Q4

REPORT INFORMATION
  Report Type: 
  Country: None (occurrence: None)
  Receive Date: 20101202
  Receipt Date: 20101202
  Transmission Date: 20110411
  Serious: Yes (Life-Threatening, Hospitalization)
  Sender: FDA-Public Use
  Company Number: None

PATIENT
  Sex: Female
  Weight: 65.9 kg

DRUGS (2)
  1. GIANVI TEVA PHARMACEUTICALS [Suspect]
     Indication: MENORRHAGIA
     Dosage: 1 TABLET DAILY BY MOUTH
     Route: 048
     Dates: start: 20100807, end: 20100907
  2. NECON [Suspect]
     Indication: MENORRHAGIA
     Dosage: 1 TABLET DAILY BY MOUTH
     Route: 048
     Dates: start: 20100908, end: 20101007

REACTIONS (1)
  - PULMONARY EMBOLISM [None]
